FAERS Safety Report 6670611-1 (Version None)
Quarter: 2010Q2

REPORT INFORMATION
  Report Type: 
  Country: None (occurrence: None)
  Receive Date: 20100407
  Receipt Date: 20100328
  Transmission Date: 20101027
  Serious: Yes (Other)
  Sender: FDA-Public Use
  Company Number: SE-JNJFOC-20100308621

PATIENT
  Sex: Female

DRUGS (2)
  1. DAKTACORT [Suspect]
     Route: 065
  2. DAKTACORT [Suspect]
     Indication: DRUG USE FOR UNKNOWN INDICATION
     Dosage: 10 MG/G
     Route: 065

REACTIONS (1)
  - ANAL HAEMORRHAGE [None]
